FAERS Safety Report 19687347 (Version 4)
Quarter: 2022Q1

REPORT INFORMATION
  Report Type: Spontaneous
  Country: US (occurrence: US)
  Receive Date: 20210811
  Receipt Date: 20220127
  Transmission Date: 20220423
  Serious: Yes (Other)
  Sender: FDA-Public Use
  Company Number: US-PFIZER INC-2021494905

PATIENT
  Age: 67 Year
  Sex: Female

DRUGS (1)
  1. XELJANZ XR [Suspect]
     Active Substance: TOFACITINIB CITRATE
     Indication: Rheumatoid arthritis
     Dosage: 11 MG, 1X/DAY (1 TABLET BY MOUTH ONCE DAILY)
     Route: 048
     Dates: start: 202101, end: 20210803

REACTIONS (11)
  - Malignant melanoma [Not Recovered/Not Resolved]
  - Drug ineffective [Unknown]
  - Raynaud^s phenomenon [Unknown]
  - Pruritus [Unknown]
  - Burning sensation [Unknown]
  - Fibromyalgia [Unknown]
  - Movement disorder [Unknown]
  - Insomnia [Unknown]
  - Psychomotor hyperactivity [Unknown]
  - Musculoskeletal stiffness [Unknown]
  - Sinusitis [Recovering/Resolving]

NARRATIVE: CASE EVENT DATE: 20211201
